FAERS Safety Report 9337110 (Version 1)
Quarter: 2013Q2

REPORT INFORMATION
  Report Type: Spontaneous
  Country: CO (occurrence: CO)
  Receive Date: 20130606
  Receipt Date: 20130606
  Transmission Date: 20140414
  Serious: Yes (Hospitalization, Other)
  Sender: FDA-Public Use
  Company Number: CO-BIOMARINP-001963

PATIENT
  Age: 8 Year
  Sex: Female
  Weight: 17.9 kg

DRUGS (4)
  1. NAGLAZYME [Suspect]
     Indication: MUCOPOLYSACCHARIDOSIS VI
     Dosage: 20MG/KG,QW
     Route: 041
     Dates: start: 20110527
  2. ACETAMINOPHEN [Concomitant]
     Indication: PREMEDICATION
  3. HYDROCHLOROTHIAZIDE [Concomitant]
     Indication: PRODUCT USED FOR UNKNOWN INDICATION
  4. CAPTOPRIL [Concomitant]
     Indication: PRODUCT USED FOR UNKNOWN INDICATION

REACTIONS (4)
  - Bronchopneumonia [Recovering/Resolving]
  - Cardiac failure [Recovering/Resolving]
  - Pulmonary hypertension [Recovering/Resolving]
  - Pleural effusion [Recovering/Resolving]
